FAERS Safety Report 8881095 (Version 1)
Quarter: 2012Q4

REPORT INFORMATION
  Report Type: 
  Country: US (occurrence: US)
  Receive Date: 20121101
  Receipt Date: 20121101
  Transmission Date: 20130627
  Serious: No
  Sender: FDA-Public Use
  Company Number: US-VERTEX PHARMACEUTICAL INC.-2012-023864

PATIENT
  Age: 55 None
  Sex: Male

DRUGS (3)
  1. INCIVEK [Suspect]
     Indication: HEPATITIS C
     Dosage: 740 mg, tid
     Route: 048
     Dates: start: 20121028
  2. RIBAVIRIN [Suspect]
     Indication: HEPATITIS C
     Dosage: 3 tablets, bid
     Route: 048
     Dates: start: 20121028
  3. PEGASYS [Suspect]
     Indication: HEPATITIS C
     Dosage: 180 ?g, weekly
     Route: 058
     Dates: start: 20121028

REACTIONS (3)
  - Chills [Unknown]
  - Pain [Recovered/Resolved]
  - Rash generalised [Not Recovered/Not Resolved]
